FAERS Safety Report 21357282 (Version 2)
Quarter: 2022Q4

REPORT INFORMATION
  Report Type: Report from Study
  Country: BR (occurrence: BR)
  Receive Date: 20220921
  Receipt Date: 20221004
  Transmission Date: 20230113
  Serious: Yes (Hospitalization)
  Sender: FDA-Public Use
  Company Number: BR-BIOGEN-2022BI01131221

PATIENT
  Age: 44 Year
  Sex: Female
  Weight: 62 kg

DRUGS (3)
  1. TYSABRI [Suspect]
     Active Substance: NATALIZUMAB
     Indication: Multiple sclerosis
     Route: 050
     Dates: start: 20220126
  2. TYSABRI [Suspect]
     Active Substance: NATALIZUMAB
     Route: 050
     Dates: start: 202201
  3. CLONAZEPAM [Concomitant]
     Active Substance: CLONAZEPAM
     Indication: Multiple sclerosis
     Route: 050
     Dates: start: 2018

REACTIONS (3)
  - Cervix carcinoma [Not Recovered/Not Resolved]
  - Anxiety [Unknown]
  - Depression [Unknown]

NARRATIVE: CASE EVENT DATE: 20220401
